FAERS Safety Report 4608799-6 (Version None)
Quarter: 2005Q1

REPORT INFORMATION
  Report Type: 
  Country: None (occurrence: None)
  Receive Date: 20050309
  Receipt Date: 20050222
  Transmission Date: 20050727
  Serious: Yes (Death)
  Sender: FDA-Public Use
  Company Number: 12874889

PATIENT
  Age: 28 Year
  Sex: Male

DRUGS (1)
  1. NALTREXONE HCL [Suspect]
     Indication: DRUG DEPENDENCE
     Dosage: 25 MILLIGRAM ORAL
     Route: 048

REACTIONS (3)
  - APALLIC SYNDROME [None]
  - INJURY ASPHYXIATION [None]
  - SUICIDE ATTEMPT [None]
